FAERS Safety Report 4723698-7 (Version None)
Quarter: 2005Q3

REPORT INFORMATION
  Report Type: 
  Country: None (occurrence: None)
  Receive Date: 20050720
  Receipt Date: 20050720
  Transmission Date: 20060218
  Serious: No
  Sender: FDA-Public Use
  Company Number: None

PATIENT
  Age: 50 Year
  Sex: Female
  Weight: 68.0396 kg

DRUGS (2)
  1. CITALOPRAM [Suspect]
     Indication: DEPRESSION
     Dosage: 20 MG PO QD
     Route: 048
  2. TRAMADOL [Suspect]
     Indication: BACK PAIN
     Dosage: 100 MG PO Q 6 PRN
     Route: 048

REACTIONS (1)
  - CONVULSION [None]
